FAERS Safety Report 20191501 (Version 2)
Quarter: 2021Q4

REPORT INFORMATION
  Report Type: Spontaneous
  Country: PL (occurrence: PL)
  Receive Date: 20211216
  Receipt Date: 20211221
  Transmission Date: 20220304
  Serious: Yes (Hospitalization)
  Sender: FDA-Public Use
  Company Number: PL-TEVA-2021-PL-1987911

PATIENT
  Age: 68 Year
  Sex: Female

DRUGS (3)
  1. VENLAFAXINE [Suspect]
     Active Substance: VENLAFAXINE HYDROCHLORIDE
     Indication: Bipolar II disorder
     Dosage: 150 MILLIGRAM DAILY;
     Route: 065
     Dates: start: 2002
  2. LITHIUM CARBONATE [Suspect]
     Active Substance: LITHIUM CARBONATE
     Indication: Affective disorder
     Dosage: 1500 MILLIGRAM DAILY;
     Route: 065
     Dates: start: 2002
  3. LITHIUM CARBONATE [Suspect]
     Active Substance: LITHIUM CARBONATE
     Dosage: 1000 MILLIGRAM DAILY;
     Route: 065
     Dates: start: 202101

REACTIONS (5)
  - Toxicity to various agents [Unknown]
  - Vomiting [Unknown]
  - Tremor [Unknown]
  - Stupor [Unknown]
  - Depression [Unknown]
